FAERS Safety Report 8565061 (Version 5)
Quarter: 2012Q4

REPORT INFORMATION
  Report Type: Report from Study
  Country: DE (occurrence: FR)
  Receive Date: 20120516
  Receipt Date: 20121026
  Transmission Date: 20130627
  Serious: Yes (Hospitalization)
  Sender: FDA-Public Use
  Company Number: FR-BRISTOL-MYERS SQUIBB COMPANY-16587800

PATIENT
  Age: 65 Year
  Sex: Male
  Weight: 88 kg

DRUGS (18)
  1. CETUXIMAB [Suspect]
     Indication: HEAD AND NECK CANCER
     Dosage: 485mg/m2,earlier dose:250mg/m2
     Route: 042
     Dates: start: 20110725, end: 20110830
  2. CISPLATIN [Suspect]
     Indication: HEAD AND NECK CANCER
     Dosage: previous dose: 150mg. Recent dose-27Jun11
     Dates: start: 20110516
  3. DOCETAXEL [Suspect]
     Indication: HEAD AND NECK CANCER
     Dosage: previous dose: 150mg
Recent dose-27Jun11
     Dates: start: 20110516
  4. 5-FLUOROURACIL [Suspect]
     Indication: HEAD AND NECK CANCER
     Dosage: 6000mg/m2,1200mg.
Last dose-10Jun11
     Dates: start: 20110516, end: 20120520
  5. TRIFLUCAN [Suspect]
     Indication: MUCOSAL INFLAMMATION
     Dates: end: 20110920
  6. COLCHICINE [Concomitant]
     Indication: GOUT
     Dates: end: 20110920
  7. LYRICA [Concomitant]
     Indication: PAIN
     Dates: end: 20110920
  8. SELOKEN [Concomitant]
     Indication: HYPERTENSION
     Dates: start: 20110904
  9. DURAGESIC [Concomitant]
     Indication: PAIN
  10. DURAGESIC [Concomitant]
     Indication: CONSTIPATION
  11. ORAMORPH [Concomitant]
     Indication: CONSTIPATION
  12. ORAMORPH [Concomitant]
     Indication: PAIN
  13. TRANSIPEG [Concomitant]
     Indication: CONSTIPATION
  14. TRANSIPEG [Concomitant]
     Indication: PAIN
  15. NISISCO [Concomitant]
     Dates: start: 20110904
  16. DIAMICRON [Concomitant]
  17. MOPRAL [Concomitant]
  18. FEBUXOSTAT [Concomitant]

REACTIONS (5)
  - Staphylococcal sepsis [Recovered/Resolved]
  - Febrile neutropenia [Unknown]
  - Mucosal inflammation [Recovered/Resolved]
  - Dysphagia [Recovered/Resolved]
  - Dermatitis [Recovered/Resolved]
